FAERS Safety Report 5366292-X (Version None)
Quarter: 2007Q2

REPORT INFORMATION
  Report Type: 
  Country: None (occurrence: None)
  Receive Date: 20070619
  Receipt Date: 20070619
  Transmission Date: 20071010
  Serious: Yes (Other)
  Sender: FDA-Public Use
  Company Number: None

PATIENT
  Sex: Male
  Weight: 81.6475 kg

DRUGS (1)
  1. PROPECIA [Suspect]
     Indication: ALOPECIA
     Dosage: 1 MG 1X/DAY PO
     Route: 048
     Dates: start: 20061104, end: 20070201

REACTIONS (2)
  - SEMEN VOLUME DECREASED [None]
  - TESTICULAR PAIN [None]
